FAERS Safety Report 11646784 (Version 2)
Quarter: 2016Q2

REPORT INFORMATION
  Report Type: Spontaneous
  Country: US (occurrence: US)
  Receive Date: 20151020
  Receipt Date: 20160429
  Transmission Date: 20160815
  Serious: No
  Sender: FDA-Public Use
  Company Number: US-ROCHE-1605288

PATIENT
  Sex: Male
  Weight: 95.34 kg

DRUGS (2)
  1. ESBRIET [Suspect]
     Active Substance: PIRFENIDONE
     Dosage: DOSE REDUCED
     Route: 048
  2. ESBRIET [Suspect]
     Active Substance: PIRFENIDONE
     Indication: IDIOPATHIC PULMONARY FIBROSIS
     Route: 048
     Dates: start: 20150224

REACTIONS (9)
  - Fatigue [Unknown]
  - Peripheral swelling [Unknown]
  - Eye swelling [Unknown]
  - Rash [Unknown]
  - Muscle spasms [Unknown]
  - Photosensitivity reaction [Unknown]
  - Skin discolouration [Unknown]
  - Mental impairment [Unknown]
  - Sunburn [Unknown]
